FAERS Safety Report 7569223-7 (Version None)
Quarter: 2011Q2

REPORT INFORMATION
  Report Type: 
  Country: None (occurrence: None)
  Receive Date: 20110623
  Receipt Date: 20110613
  Transmission Date: 20111010
  Serious: Yes (Other)
  Sender: FDA-Public Use
  Company Number: PHHY2011US50050

PATIENT

DRUGS (1)
  1. EXJADE [Suspect]
     Route: 048

REACTIONS (1)
  - NEPHROLITHIASIS [None]
